FAERS Safety Report 8072570-6 (Version None)
Quarter: 2012Q1

REPORT INFORMATION
  Report Type: 
  Country: None (occurrence: None)
  Receive Date: 20120120
  Receipt Date: 20120110
  Transmission Date: 20120608
  Serious: Yes (Other)
  Sender: FDA-Public Use
  Company Number: JP-1189030

PATIENT
  Age: 56 Year
  Sex: Male

DRUGS (1)
  1. FLUORESCITE [Suspect]
     Indication: ANGIOGRAM RETINA
     Dosage: (5ML INTRAVENOUS BOLUS)
     Route: 040
     Dates: start: 20111111, end: 20111111

REACTIONS (4)
  - URTICARIA [None]
  - ANAPHYLACTOID REACTION [None]
  - LIP SWELLING [None]
  - HYPOAESTHESIA ORAL [None]
